FAERS Safety Report 16630722 (Version 1)
Quarter: 2019Q3

REPORT INFORMATION
  Report Type: Report from Study
  Country: IT (occurrence: IT)
  Receive Date: 20190725
  Receipt Date: 20190725
  Transmission Date: 20191004
  Serious: Yes (Hospitalization)
  Sender: FDA-Public Use
  Company Number: IT-TEVA-2019-IT-1082500

PATIENT
  Age: 72 Year
  Sex: Female

DRUGS (4)
  1. CEFIXORAL 400 MG COMPRESSE RIVESTITE [Suspect]
     Active Substance: CEFIXIME
     Indication: PULMONARY OEDEMA
     Dosage: 1 DOSAGE FORMS
     Route: 048
     Dates: start: 20190221, end: 20190302
  2. LEVOFLOXACIN. [Suspect]
     Active Substance: LEVOFLOXACIN
     Indication: PULMONARY OEDEMA
     Dosage: 1 DOSAGE FORMS
     Route: 048
     Dates: start: 20190221, end: 20190302
  3. ENALAPRIL [Concomitant]
     Active Substance: ENALAPRIL
     Route: 048
  4. DOXAZOSIN [Concomitant]
     Active Substance: DOXAZOSIN MESYLATE
     Route: 048

REACTIONS (1)
  - Enterocolitis [Recovered/Resolved]

NARRATIVE: CASE EVENT DATE: 20190302
